FAERS Safety Report 9708400 (Version 1)
Quarter: 2013Q4

REPORT INFORMATION
  Report Type: Report from Study
  Country: DE (occurrence: DE)
  Receive Date: 20131125
  Receipt Date: 20131125
  Transmission Date: 20140711
  Serious: Yes (Other)
  Sender: FDA-Public Use
  Company Number: DE-ROCHE-1305038

PATIENT
  Age: 50 Year
  Sex: 0

DRUGS (1)
  1. ERIVEDGE [Suspect]
     Indication: BASAL CELL CARCINOMA
     Route: 065

REACTIONS (6)
  - Lipase increased [Unknown]
  - Amylase increased [Unknown]
  - Fatigue [Unknown]
  - Muscle spasms [Unknown]
  - Irritability [Unknown]
  - Diarrhoea [Unknown]
